FAERS Safety Report 13784323 (Version 1)
Quarter: 2017Q3

REPORT INFORMATION
  Report Type: Spontaneous
  Country: US (occurrence: US)
  Receive Date: 20170724
  Receipt Date: 20170724
  Transmission Date: 20171127
  Serious: Yes (Life-Threatening, Hospitalization)
  Sender: FDA-Public Use
  Company Number: PHHY2017US105215

PATIENT
  Age: 28 Year
  Sex: Male

DRUGS (4)
  1. QUETIAPINE. [Concomitant]
     Active Substance: QUETIAPINE
     Indication: PRODUCT USED FOR UNKNOWN INDICATION
     Route: 065
  2. LOPERAMIDE [Suspect]
     Active Substance: LOPERAMIDE
     Indication: PRODUCT USED FOR UNKNOWN INDICATION
     Dosage: 400 MG, QD
     Route: 065
  3. PRAZOSIN. [Concomitant]
     Active Substance: PRAZOSIN
     Indication: PRODUCT USED FOR UNKNOWN INDICATION
     Route: 065
  4. FLUOXETINE [Concomitant]
     Active Substance: FLUOXETINE HYDROCHLORIDE
     Indication: PRODUCT USED FOR UNKNOWN INDICATION
     Route: 065

REACTIONS (11)
  - Electrocardiogram QT prolonged [Recovered/Resolved]
  - Sinus bradycardia [Recovered/Resolved]
  - Overdose [Unknown]
  - Drug abuse [Unknown]
  - Presyncope [Recovered/Resolved]
  - Extrasystoles [Recovered/Resolved]
  - Palpitations [Recovered/Resolved]
  - Ventricular arrhythmia [Recovered/Resolved]
  - Heart rate increased [Recovered/Resolved]
  - Syncope [Recovered/Resolved]
  - Ventricular tachycardia [Recovered/Resolved]
